FAERS Safety Report 10313672 (Version 3)
Quarter: 2014Q3

REPORT INFORMATION
  Report Type: Spontaneous
  Country: IT (occurrence: IT)
  Receive Date: 20140718
  Receipt Date: 20140730
  Transmission Date: 20150326
  Serious: Yes (Hospitalization)
  Sender: FDA-Public Use
  Company Number: IT-PFIZER INC-2014197798

PATIENT
  Age: 56 Year
  Sex: Male

DRUGS (7)
  1. QUETIAPIN TEVA [Suspect]
     Active Substance: QUETIAPINE
     Dosage: 40 DF, TOTAL
     Route: 048
     Dates: start: 20140620, end: 20140620
  2. EN [Concomitant]
     Active Substance: DELORAZEPAM
     Dosage: 10 GTT, UNK
     Route: 048
  3. QUETIAPIN TEVA [Suspect]
     Active Substance: QUETIAPINE
     Indication: DEPRESSION
     Dosage: 100 MG, DAILY
     Dates: end: 20140620
  4. EFFEXOR [Suspect]
     Active Substance: VENLAFAXINE HYDROCHLORIDE
     Dosage: 6 DF, TOTAL
     Route: 048
     Dates: start: 20140620, end: 20140620
  5. CARDICOR [Suspect]
     Active Substance: BISOPROLOL
     Dosage: 1.25 MG, DAILY
     Dates: end: 20140620
  6. EFFEXOR [Suspect]
     Active Substance: VENLAFAXINE HYDROCHLORIDE
     Indication: DEPRESSION
     Dosage: 150 MG, 1X/DAY
     Dates: end: 20140620
  7. CARDICOR [Suspect]
     Active Substance: BISOPROLOL
     Dosage: 20 DF, TOTAL
     Route: 048
     Dates: start: 20140620, end: 20140620

REACTIONS (3)
  - Sopor [Recovering/Resolving]
  - Drug abuse [Recovering/Resolving]
  - Cough [Recovering/Resolving]

NARRATIVE: CASE EVENT DATE: 20140620
